FAERS Safety Report 4282834-X (Version None)
Quarter: 2004Q1

REPORT INFORMATION
  Report Type: 
  Country: None (occurrence: None)
  Receive Date: 20040130
  Receipt Date: 20030515
  Transmission Date: 20041129
  Serious: No
  Sender: FDA-Public Use
  Company Number: US-BRISTOL-MYERS SQUIBB COMPANY-12276770

PATIENT
  Sex: Male

DRUGS (4)
  1. SERZONE [Suspect]
     Dosage: PT HAD SERZONE FILLED FROM 17-JUN-98 TO 26-OCT-98 (ACCORDING TO RX RECORDS)
     Route: 048
  2. METRONIDAZOLE [Concomitant]
  3. ZOVIRAX [Concomitant]
     Route: 061
  4. DOXYCYCLINE [Concomitant]

REACTIONS (5)
  - ABDOMINAL PAIN [None]
  - ALANINE AMINOTRANSFERASE INCREASED [None]
  - ANOREXIA [None]
  - ASPARTATE AMINOTRANSFERASE INCREASED [None]
  - NAUSEA [None]
